FAERS Safety Report 11789583 (Version 1)
Quarter: 2015Q4

REPORT INFORMATION
  Report Type: Spontaneous
  Country: US (occurrence: None)
  Receive Date: 20151130
  Receipt Date: 20151130
  Transmission Date: 20160305
  Serious: No
  Sender: FDA-Public Use
  Company Number: None

PATIENT
  Age: 68 Year
  Sex: Male
  Weight: 95 kg

DRUGS (1)
  1. BROMOCRIPTINE [Suspect]
     Active Substance: BROMOCRIPTINE
     Indication: PROLACTINOMA
     Route: 048
     Dates: start: 20111027, end: 20130603

REACTIONS (2)
  - Thrombocytopenia [None]
  - Leukopenia [None]

NARRATIVE: CASE EVENT DATE: 20130603
